APPROVED DRUG PRODUCT: AZOPT
Active Ingredient: BRINZOLAMIDE
Strength: 1%
Dosage Form/Route: SUSPENSION/DROPS;OPHTHALMIC
Application: N020816 | Product #001 | TE Code: AB
Applicant: SANDOZ INC
Approved: Apr 1, 1998 | RLD: Yes | RS: Yes | Type: RX